FAERS Safety Report 8806260 (Version 1)
Quarter: 2012Q4

REPORT INFORMATION
  Report Type: 
  Country: FR (occurrence: FR)
  Receive Date: 20120925
  Receipt Date: 20120925
  Transmission Date: 20130627
  Serious: Yes (Other)
  Sender: FDA-Public Use
  Company Number: PHHY2012FR080807

PATIENT
  Age: 62 Year
  Sex: Female
  Weight: 50 kg

DRUGS (2)
  1. TASIGNA [Suspect]
     Indication: CHRONIC MYELOID LEUKAEMIA
     Dosage: 400 mg, daily
     Dates: start: 20071120
  2. KOREC [Concomitant]
     Indication: HYPERTENSION

REACTIONS (7)
  - Carotid artery stenosis [Unknown]
  - Metabolic disorder [Unknown]
  - Xanthelasma [Unknown]
  - Hypercholesterolaemia [Unknown]
  - Blood glucose increased [Unknown]
  - Dyslipidaemia [Unknown]
  - Diabetes mellitus [None]
